FAERS Safety Report 4532292-2 (Version None)
Quarter: 2004Q4

REPORT INFORMATION
  Report Type: 
  Country: None (occurrence: None)
  Receive Date: 20041217
  Receipt Date: 20041207
  Transmission Date: 20050328
  Serious: No
  Sender: FDA-Public Use
  Company Number: 2004094016

PATIENT
  Age: 66 Year
  Sex: Female
  Weight: 89.8122 kg

DRUGS (6)
  1. ALDACTONE [Suspect]
     Indication: HYPERTENSION
     Dosage: 25 MG (25 MG, EVERY DAY), ORAL
     Route: 048
     Dates: start: 20041008, end: 20041115
  2. VERAPAMIL HCL [Concomitant]
  3. IRBESARTAN [Concomitant]
  4. FUROSEMIDE [Concomitant]
  5. DIPHENHYDRAMINE HCL [Concomitant]
  6. NAPROXEN SODIUM [Concomitant]

REACTIONS (6)
  - ARTHRALGIA [None]
  - DIFFICULTY IN WALKING [None]
  - HYPOAESTHESIA [None]
  - MUSCLE CRAMP [None]
  - MYALGIA [None]
  - PAIN [None]
